FAERS Safety Report 12712248 (Version 12)
Quarter: 2020Q1

REPORT INFORMATION
  Report Type: Report from Study
  Country: US (occurrence: US)
  Receive Date: 20160902
  Receipt Date: 20200312
  Transmission Date: 20200409
  Serious: Yes (Hospitalization, Other)
  Sender: FDA-Public Use
  Company Number: US-SA-2016SA133214

PATIENT
  Age: 48 Year
  Sex: Male

DRUGS (3)
  1. ALEMTUZUMAB [Suspect]
     Active Substance: ALEMTUZUMAB
     Indication: MULTIPLE SCLEROSIS
     Dosage: 12 MG,QD
     Route: 041
     Dates: start: 20160711, end: 20160715
  2. ALEMTUZUMAB [Suspect]
     Active Substance: ALEMTUZUMAB
     Dosage: 12 MG,QD
     Route: 041
     Dates: start: 20180425, end: 20180427
  3. AUBAGIO [Suspect]
     Active Substance: TERIFLUNOMIDE
     Dosage: UNK UNK,UNK
     Route: 065

REACTIONS (25)
  - Urinary bladder haemorrhage [Recovered/Resolved]
  - Rash [Unknown]
  - Epistaxis [Recovered/Resolved]
  - Urinary tract infection [Recovered/Resolved]
  - Urine odour abnormal [Unknown]
  - Flushing [Recovered/Resolved]
  - Eye disorder [Not Recovered/Not Resolved]
  - Chromaturia [Unknown]
  - Weight increased [Not Recovered/Not Resolved]
  - Cough [Not Recovered/Not Resolved]
  - Thyroid function test abnormal [Not Recovered/Not Resolved]
  - Blood thyroid stimulating hormone increased [Unknown]
  - Back pain [Recovered/Resolved]
  - Gait disturbance [Not Recovered/Not Resolved]
  - Fatigue [Not Recovered/Not Resolved]
  - Urinary retention [Unknown]
  - Squamous cell carcinoma [Unknown]
  - Hypersensitivity [Recovered/Resolved]
  - T-lymphocyte count decreased [Recovered/Resolved]
  - Blood urine present [Not Recovered/Not Resolved]
  - Memory impairment [Unknown]
  - Yawning [Not Recovered/Not Resolved]
  - Multiple sclerosis relapse [Unknown]
  - Facial paralysis [Recovered/Resolved]
  - Pain [Not Recovered/Not Resolved]

NARRATIVE: CASE EVENT DATE: 2016
